FAERS Safety Report 5498674-X (Version None)
Quarter: 2007Q4

REPORT INFORMATION
  Report Type: 
  Country: None (occurrence: None)
  Receive Date: 20071024
  Receipt Date: 20071024
  Transmission Date: 20080405
  Serious: Yes (Death, Life-Threatening, Hospitalization)
  Sender: FDA-Public Use
  Company Number: None

PATIENT
  Age: 65 Year
  Sex: Male
  Weight: 81.6475 kg

DRUGS (1)
  1. METHOTREXATE [Suspect]
     Indication: RHEUMATOID ARTHRITIS
     Dosage: 4 TABLETS WEEKLY PO
     Route: 048
     Dates: start: 20070828, end: 20070907

REACTIONS (10)
  - ABDOMINAL PAIN UPPER [None]
  - BONE MARROW DISORDER [None]
  - COLON GANGRENE [None]
  - EPISTAXIS [None]
  - GASTROINTESTINAL INFECTION [None]
  - HAEMORRHOIDAL HAEMORRHAGE [None]
  - INTESTINAL PERFORATION [None]
  - PLATELET COUNT DECREASED [None]
  - SEPSIS [None]
  - WHITE BLOOD CELL COUNT DECREASED [None]
